APPROVED DRUG PRODUCT: SERZONE
Active Ingredient: NEFAZODONE HYDROCHLORIDE
Strength: 250MG **Federal Register determination that product was not discontinued or withdrawn for safety or effectiveness reasons**
Dosage Form/Route: TABLET;ORAL
Application: N020152 | Product #005
Applicant: BRISTOL MYERS SQUIBB CO PHARMACEUTICAL RESEARCH INSTITUTE
Approved: Dec 22, 1994 | RLD: Yes | RS: No | Type: DISCN